FAERS Safety Report 6260859-2 (Version None)
Quarter: 2009Q3

REPORT INFORMATION
  Report Type: 
  Country: None (occurrence: None)
  Receive Date: 20090707
  Receipt Date: 20090520
  Transmission Date: 20100115
  Serious: Yes (Other)
  Sender: FDA-Public Use
  Company Number: S07-SWI-00279-01

PATIENT
  Age: 39 Year
  Sex: Female

DRUGS (4)
  1. ESCITALOPRAM [Suspect]
     Indication: DEPRESSION
     Dosage: ORAL
     Route: 048
  2. TRANXILIUM (CLORAZEPATE DIPOTASSIUM) (UNKNOWN) [Suspect]
     Indication: DEPRESSION
     Dosage: 20 MG (20 MG), ORAL
     Route: 048
     Dates: end: 20060321
  3. ALCOHOL (ETHANOL) [Suspect]
     Dosage: ORAL
     Route: 048
     Dates: end: 20060201
  4. LORAZEPAM [Suspect]
     Indication: DEPRESSION
     Dosage: 2.5MG (2.5 MG), ORAL
     Route: 048
     Dates: start: 20060321

REACTIONS (4)
  - ABORTION INDUCED [None]
  - DRUG EXPOSURE DURING PREGNANCY [None]
  - INFECTION [None]
  - PREGNANCY [None]
